FAERS Safety Report 12947457 (Version 1)
Quarter: 2016Q4

REPORT INFORMATION
  Report Type: Spontaneous
  Country: US (occurrence: US)
  Receive Date: 20161116
  Receipt Date: 20161116
  Transmission Date: 20170207
  Serious: Yes (Life-Threatening, Hospitalization)
  Sender: FDA-Public Use
  Company Number: US-JNJFOC-20161115719

PATIENT
  Age: 71 Year
  Sex: Male

DRUGS (3)
  1. IMBRUVICA [Suspect]
     Active Substance: IBRUTINIB
     Indication: WALDENSTROM^S MACROGLOBULINAEMIA
     Route: 048
     Dates: start: 20160701, end: 20160827
  2. IMBRUVICA [Suspect]
     Active Substance: IBRUTINIB
     Indication: WALDENSTROM^S MACROGLOBULINAEMIA
     Route: 048
     Dates: start: 201505
  3. DEFERASIROX [Suspect]
     Active Substance: DEFERASIROX
     Indication: HAEMOCHROMATOSIS
     Dates: start: 20160813, end: 20160827

REACTIONS (4)
  - Syncope [Unknown]
  - Ventricular fibrillation [Unknown]
  - Torsade de pointes [Unknown]
  - Cognitive disorder [Unknown]

NARRATIVE: CASE EVENT DATE: 2016
